FAERS Safety Report 8911366 (Version 1)
Quarter: 2012Q4

REPORT INFORMATION
  Report Type: 
  Country: US (occurrence: US)
  Receive Date: 20121116
  Receipt Date: 20121116
  Transmission Date: 20130627
  Serious: No
  Sender: FDA-Public Use
  Company Number: US-009507513-1211USA004466

PATIENT
  Age: 73 Year
  Sex: Male

DRUGS (9)
  1. JANUMET XR [Suspect]
     Indication: TYPE 2 DIABETES MELLITUS
     Dosage: 1 DF, qd
     Route: 048
     Dates: start: 201207, end: 201209
  2. LISINOPRIL [Concomitant]
     Dosage: 40 mg, bid
  3. PRAVASTATIN SODIUM [Concomitant]
     Dosage: 40 mg, qd
  4. CARVEDILOL [Concomitant]
     Dosage: 12.5 mg, bid
  5. CELEBREX [Concomitant]
     Dosage: 200 mg, qd
  6. ASPIRIN [Concomitant]
     Dosage: 80 mg, qd
  7. OMEPRAZOLE [Concomitant]
     Dosage: 20 mg, qd
  8. TYLENOL WITH CODEINE #3 [Concomitant]
     Dosage: 1 DF, q6h prn
  9. LOSARTAN POTASSIUM [Concomitant]
     Dosage: 50 mg, qd

REACTIONS (1)
  - Blood glucose increased [Recovering/Resolving]
